FAERS Safety Report 21418138 (Version 1)
Quarter: 2022Q4

REPORT INFORMATION
  Report Type: Spontaneous
  Country: US (occurrence: None)
  Receive Date: 20221005
  Receipt Date: 20221005
  Transmission Date: 20230113
  Serious: Yes (Other)
  Sender: FDA-Public Use
  Company Number: None

PATIENT
  Age: 33 Year
  Sex: Female

DRUGS (1)
  1. AMBRISENTAN [Suspect]
     Active Substance: AMBRISENTAN
     Indication: Pulmonary arterial hypertension
     Dosage: FREQUENCY : DAILY;?
     Route: 048
     Dates: start: 20220128

REACTIONS (7)
  - Flank pain [None]
  - Renal pain [None]
  - Pain [None]
  - Dyspnoea [None]
  - Palpitations [None]
  - Sensation of blood flow [None]
  - Heart rate increased [None]

NARRATIVE: CASE EVENT DATE: 20220516
